FAERS Safety Report 25864002 (Version 1)
Quarter: 2025Q3

REPORT INFORMATION
  Report Type: Spontaneous
  Country: US (occurrence: None)
  Receive Date: 20250929
  Receipt Date: 20250929
  Transmission Date: 20251020
  Serious: Yes (Disabling, Other)
  Sender: FDA-CTU
  Company Number: None

PATIENT
  Age: 48 Year
  Sex: Male
  Weight: 101.25 kg

DRUGS (5)
  1. JARDIANCE [Suspect]
     Active Substance: EMPAGLIFLOZIN
     Indication: Cardiac failure congestive
     Route: 048
     Dates: start: 20240930, end: 20241101
  2. LISINOPRIL [Concomitant]
     Active Substance: LISINOPRIL
  3. METOPROLOL [Concomitant]
     Active Substance: METOPROLOL
  4. SPIRONOLACTONE [Concomitant]
     Active Substance: SPIRONOLACTONE
  5. POTASSIUM CHLORIDE [Concomitant]
     Active Substance: POTASSIUM CHLORIDE

REACTIONS (8)
  - Genital rash [None]
  - Skin exfoliation [None]
  - Erythema [None]
  - Skin haemorrhage [None]
  - Pain of skin [None]
  - Skin laceration [None]
  - Pruritus genital [None]
  - Genital burning sensation [None]

NARRATIVE: CASE EVENT DATE: 20241101
